FAERS Safety Report 21350886 (Version 1)
Quarter: 2022Q3

REPORT INFORMATION
  Report Type: Spontaneous
  Country: CA (occurrence: CA)
  Receive Date: 20220919
  Receipt Date: 20220919
  Transmission Date: 20221027
  Serious: Yes (Death, Other)
  Sender: FDA-Public Use
  Company Number: CA-KI BIOPHARMA, LLC-2022KAM00202

PATIENT
  Age: 43 Year
  Sex: Male

DRUGS (7)
  1. CYTOGAM [Suspect]
     Active Substance: HUMAN CYTOMEGALOVIRUS IMMUNE GLOBULIN
     Indication: Encephalitis cytomegalovirus
     Dosage: 0.25 G ON DAY 350
     Route: 037
  2. CYTOGAM [Suspect]
     Active Substance: HUMAN CYTOMEGALOVIRUS IMMUNE GLOBULIN
     Dosage: 0.5 G ON DAY 357, 364, AND 365
     Route: 037
  3. CYCLOSPORINE [Concomitant]
     Active Substance: CYCLOSPORINE
     Indication: Prophylaxis
     Route: 065
  4. GANCICLOVIR [Concomitant]
     Active Substance: GANCICLOVIR
     Indication: Encephalitis cytomegalovirus
     Dosage: 5 MG/KG, 2X/DAY
     Route: 065
  5. GANCICLOVIR [Concomitant]
     Active Substance: GANCICLOVIR
     Dosage: 7.5 MG/KG TWICE DAILY
     Route: 065
  6. GANCICLOVIR [Concomitant]
     Active Substance: GANCICLOVIR
     Dosage: RESUMED ON DAY 258
     Route: 065
  7. GANCICLOVIR [Concomitant]
     Active Substance: GANCICLOVIR
     Dosage: RESUMED ON DAY 323
     Route: 065

REACTIONS (3)
  - Drug ineffective for unapproved indication [Fatal]
  - Inappropriate schedule of product administration [Recovered/Resolved]
  - Incorrect route of product administration [Recovered/Resolved]
